FAERS Safety Report 8889593 (Version 3)
Quarter: 2013Q1

REPORT INFORMATION
  Report Type: Spontaneous
  Country: JP (occurrence: JP)
  Receive Date: 20121107
  Receipt Date: 20130218
  Transmission Date: 20140127
  Serious: Yes (Hospitalization)
  Sender: FDA-Public Use
  Company Number: JP-ELI_LILLY_AND_COMPANY-JP201210009284

PATIENT
  Sex: Female

DRUGS (2)
  1. FORTEO [Suspect]
     Dosage: UNK
     Route: 058
     Dates: end: 20121015
  2. FORTEO [Suspect]
     Dosage: UNK
     Route: 058
     Dates: start: 20130207

REACTIONS (2)
  - Fall [Recovered/Resolved]
  - Fracture [Unknown]
